FAERS Safety Report 10145647 (Version 1)
Quarter: 2014Q2

REPORT INFORMATION
  Report Type: Spontaneous
  Country: US (occurrence: None)
  Receive Date: 20140429
  Receipt Date: 20140429
  Transmission Date: 20141212
  Serious: Yes (Hospitalization)
  Sender: FDA-Public Use
  Company Number: UCM201404-000057

PATIENT
  Age: 78 Year
  Sex: Female
  Weight: 59.87 kg

DRUGS (6)
  1. CLONIDINE HCL [Suspect]
     Indication: HYPERTENSION
  2. PROTONIX [Concomitant]
  3. FLOVENT (FLUTICASONE PROPIONATE) [Concomitant]
  4. COMBIVENT (IPRATROPIUM BROMIDE, ALBUTEROL) [Concomitant]
  5. ASPIRIN [Concomitant]
  6. LEVOTHYROXINE [Concomitant]

REACTIONS (5)
  - Blood pressure increased [None]
  - Eye disorder [None]
  - Dyspnoea [None]
  - Gait disturbance [None]
  - Drug dose omission [None]
